FAERS Safety Report 11210517 (Version 3)
Quarter: 2016Q3

REPORT INFORMATION
  Report Type: Spontaneous
  Country: US (occurrence: US)
  Receive Date: 20150622
  Receipt Date: 20160720
  Transmission Date: 20161109
  Serious: No
  Sender: FDA-Public Use
  Company Number: US-ASTELLAS-2014US008672

PATIENT
  Sex: Female
  Weight: 60 kg

DRUGS (6)
  1. ANALGESICS [Concomitant]
     Active Substance: UNSPECIFIED INGREDIENT
     Indication: PAIN
     Dosage: UNK UNK, UNKNOWN FREQ.
     Route: 065
  2. VESICARE [Suspect]
     Active Substance: SOLIFENACIN SUCCINATE
     Indication: POLLAKIURIA
     Dosage: 10 MG, ONCE DAILY (CUTTING IN HALF)
     Route: 048
     Dates: start: 2005
  3. MORPHINE [Concomitant]
     Active Substance: MORPHINE
     Indication: PRODUCT USED FOR UNKNOWN INDICATION
     Dosage: UNK UNK, UNKNOWN FREQ.
     Route: 065
  4. VESICARE [Suspect]
     Active Substance: SOLIFENACIN SUCCINATE
     Indication: POLLAKIURIA
     Route: 048
  5. VESICARE [Suspect]
     Active Substance: SOLIFENACIN SUCCINATE
     Indication: DYSURIA
     Dosage: 1 TABLET CUT IN HALF
     Route: 048
     Dates: end: 201406
  6. ZOCOR [Concomitant]
     Active Substance: SIMVASTATIN
     Indication: PRODUCT USED FOR UNKNOWN INDICATION
     Dosage: UNK UNK, UNKNOWN FREQ.
     Route: 065

REACTIONS (3)
  - Muscle spasms [Unknown]
  - Back pain [Unknown]
  - Wrong technique in product usage process [Unknown]
